FAERS Safety Report 8265211-6 (Version None)
Quarter: 2012Q2

REPORT INFORMATION
  Report Type: 
  Country: None (occurrence: None)
  Receive Date: 20120406
  Receipt Date: 20120328
  Transmission Date: 20120825
  Serious: Yes (Hospitalization, Other)
  Sender: FDA-Public Use
  Company Number: JP-PFIZER INC-2012085271

PATIENT
  Age: 69 Year
  Sex: Male

DRUGS (7)
  1. DIGOXIN [Interacting]
     Indication: ATRIAL FLUTTER
     Dosage: 0.125 MG, 1X/DAY
  2. AMIODARONE HCL [Interacting]
     Indication: VENTRICULAR TACHYCARDIA
     Dosage: 200 MG, 1X/DAY
  3. AMIODARONE HCL [Interacting]
     Indication: ATRIAL FLUTTER
     Dosage: 100 MG, 1X/DAY
  4. AMIODARONE HCL [Interacting]
     Dosage: 200 MG, 1X/DAY
  5. AMIODARONE HCL [Interacting]
     Dosage: 100 MG, 1X/DAY
  6. AMIODARONE HCL [Suspect]
     Indication: ATRIAL FIBRILLATION
     Dosage: 400 MG, 1X/DAY
  7. WARFARIN SODIUM [Interacting]
     Indication: PRODUCT USED FOR UNKNOWN INDICATION

REACTIONS (3)
  - DRUG INTERACTION [None]
  - CARDIOACTIVE DRUG LEVEL INCREASED [None]
  - PNEUMONIA [None]
